FAERS Safety Report 7370754-3 (Version None)
Quarter: 2011Q1

REPORT INFORMATION
  Report Type: 
  Country: None (occurrence: None)
  Receive Date: 20110323
  Receipt Date: 20110203
  Transmission Date: 20110831
  Serious: Yes (Other)
  Sender: FDA-Public Use
  Company Number: US-BAYER-201036955NA

PATIENT
  Sex: Male
  Weight: 127 kg

DRUGS (15)
  1. NEPHROCAPS [Concomitant]
  2. OPTIMARK [Suspect]
     Indication: NUCLEAR MAGNETIC RESONANCE IMAGING
  3. VICODIN [Concomitant]
  4. COUMADIN [Concomitant]
  5. METOPROLOL [Concomitant]
  6. EPOGEN [Concomitant]
  7. PREDNISONE [Concomitant]
  8. SENSIPAR [Concomitant]
  9. HECTOROL [Concomitant]
  10. RYTHMOL [Concomitant]
  11. MAGNEVIST [Suspect]
     Indication: NUCLEAR MAGNETIC RESONANCE IMAGING
  12. DILAUDID [Concomitant]
  13. OMNISCAN [Suspect]
     Indication: NUCLEAR MAGNETIC RESONANCE IMAGING
  14. TAGAMET [Concomitant]
  15. XANAX [Concomitant]

REACTIONS (13)
  - SCAR [None]
  - SKIN TIGHTNESS [None]
  - PARAESTHESIA [None]
  - PRURITUS [None]
  - HYPOAESTHESIA [None]
  - SKIN INDURATION [None]
  - BURNING SENSATION [None]
  - SWELLING [None]
  - DEFORMITY [None]
  - NEPHROGENIC SYSTEMIC FIBROSIS [None]
  - PAIN [None]
  - GENERAL PHYSICAL HEALTH DETERIORATION [None]
  - MUSCULAR WEAKNESS [None]
